FAERS Safety Report 22005891 (Version 5)
Quarter: 2023Q2

REPORT INFORMATION
  Report Type: Report from Study
  Country: US (occurrence: US)
  Receive Date: 20230217
  Receipt Date: 20230623
  Transmission Date: 20230722
  Serious: No
  Sender: FDA-Public Use
  Company Number: US-002147023-NVSC2023US036843

PATIENT
  Sex: Female

DRUGS (1)
  1. ENTRESTO [Suspect]
     Active Substance: SACUBITRIL\VALSARTAN
     Indication: Product used for unknown indication
     Dosage: 1 DOSAGE FORM (24/26MG)
     Route: 065

REACTIONS (9)
  - Peripheral swelling [Unknown]
  - Back pain [Unknown]
  - Pain in extremity [Unknown]
  - Abdominal discomfort [Unknown]
  - Hypoglycaemia [Unknown]
  - Intervertebral disc disorder [Unknown]
  - Peroneal nerve palsy [Unknown]
  - Balance disorder [Unknown]
  - Fatigue [Unknown]
